FAERS Safety Report 4958339-7 (Version None)
Quarter: 2006Q1

REPORT INFORMATION
  Report Type: 
  Country: None (occurrence: None)
  Receive Date: 20060329
  Receipt Date: 20060329
  Transmission Date: 20060701
  Serious: Yes (Other)
  Sender: FDA-Public Use
  Company Number: None

PATIENT
  Age: 4 Month
  Sex: Male
  Weight: 7.5 kg

DRUGS (1)
  1. TAMIFLU [Suspect]
     Indication: INFLUENZA
     Dosage: 30 MG 2 PER DAY ORAL
     Route: 048
     Dates: start: 20050225, end: 20050302

REACTIONS (6)
  - DIARRHOEA [None]
  - EAR INFECTION [None]
  - MEDICATION ERROR [None]
  - PYREXIA [None]
  - WHEEZING [None]
  - WRONG DRUG ADMINISTERED [None]
